FAERS Safety Report 12685128 (Version 1)
Quarter: 2016Q3

REPORT INFORMATION
  Report Type: Spontaneous
  Country: JP (occurrence: JP)
  Receive Date: 20160825
  Receipt Date: 20160825
  Transmission Date: 20161109
  Serious: Yes (Hospitalization)
  Sender: FDA-Public Use
  Company Number: JP-TEVA-686042ISR

PATIENT
  Age: 65 Year
  Sex: Male

DRUGS (5)
  1. PREDNISOLONE. [Suspect]
     Active Substance: PREDNISOLONE
     Dosage: 10MG
     Dates: start: 20160520
  2. NIVOLUMAB [Concomitant]
     Active Substance: NIVOLUMAB
     Dosage: 209MG
     Route: 042
     Dates: start: 20160118, end: 20160705
  3. EVEROLIMUS [Concomitant]
     Active Substance: EVEROLIMUS
     Dates: start: 20130319
  4. PREDNISOLONE. [Suspect]
     Active Substance: PREDNISOLONE
     Indication: BRAIN OEDEMA
     Dosage: 15 MILLIGRAM DAILY; REDUCED TO 15 MG/DAY
     Dates: start: 20160624
  5. PREDNISOLONE. [Suspect]
     Active Substance: PREDNISOLONE
     Dosage: 20MG
     Dates: start: 20160610, end: 20160623

REACTIONS (1)
  - Glucose tolerance decreased [Recovering/Resolving]

NARRATIVE: CASE EVENT DATE: 20160629
